FAERS Safety Report 14345645 (Version 1)
Quarter: 2018Q1

REPORT INFORMATION
  Report Type: Spontaneous
  Country: US (occurrence: US)
  Receive Date: 20180103
  Receipt Date: 20180103
  Transmission Date: 20180509
  Serious: Yes (Death, Other)
  Sender: FDA-Public Use
  Company Number: US-009507513-1712USA014634

PATIENT
  Age: 55 Year
  Sex: Female

DRUGS (13)
  1. REMERON [Suspect]
     Active Substance: MIRTAZAPINE
     Route: 048
  2. DIPHENHYDRAMINE HYDROCHLORIDE (+) NAPROXEN SODIUM [Suspect]
     Active Substance: DIPHENHYDRAMINE HYDROCHLORIDE\NAPROXEN SODIUM
  3. DIPHENHYDRAMINE HYDROCHLORIDE (+) IBUPROFEN [Suspect]
     Active Substance: DIPHENHYDRAMINE HYDROCHLORIDE\IBUPROFEN
  4. MELATONIN [Suspect]
     Active Substance: MELATONIN
  5. TRAZODONE HYDROCHLORIDE. [Suspect]
     Active Substance: TRAZODONE HYDROCHLORIDE
     Route: 048
  6. LURASIDONE HYDROCHLORIDE [Suspect]
     Active Substance: LURASIDONE HYDROCHLORIDE
  7. BENZONATATE. [Suspect]
     Active Substance: BENZONATATE
  8. METOPROLOL. [Suspect]
     Active Substance: METOPROLOL
  9. TRAMADOL HYDROCHLORIDE. [Suspect]
     Active Substance: TRAMADOL HYDROCHLORIDE
  10. GABAPENTIN. [Suspect]
     Active Substance: GABAPENTIN
  11. TEMAZEPAM. [Suspect]
     Active Substance: TEMAZEPAM
  12. LORAZEPAM. [Suspect]
     Active Substance: LORAZEPAM
  13. LISINOPRIL (+) HYDROCHLOROTHIAZIDE [Suspect]
     Active Substance: HYDROCHLOROTHIAZIDE\LISINOPRIL
     Route: 048

REACTIONS (1)
  - Death [Fatal]
